FAERS Safety Report 15881403 (Version 2)
Quarter: 2019Q1

REPORT INFORMATION
  Report Type: Spontaneous
  Country: US (occurrence: US)
  Receive Date: 20190128
  Receipt Date: 20190219
  Transmission Date: 20190417
  Serious: Yes (Hospitalization)
  Sender: FDA-Public Use
  Company Number: US-GLAXOSMITHKLINE-US2019GSK014562

PATIENT
  Age: 26 Year
  Sex: Female

DRUGS (1)
  1. BENLYSTA [Suspect]
     Active Substance: BELIMUMAB
     Indication: SYSTEMIC LUPUS ERYTHEMATOSUS
     Dosage: UNK, ONCE A MONTH
     Route: 042

REACTIONS (4)
  - Pneumonitis [Recovered/Resolved]
  - Pleurisy [Recovered/Resolved]
  - Tonsillectomy [Recovered/Resolved]
  - Disease complication [Unknown]

NARRATIVE: CASE EVENT DATE: 20190111
